FAERS Safety Report 15942392 (Version 1)
Quarter: 2019Q1

REPORT INFORMATION
  Report Type: Spontaneous
  Country: US (occurrence: US)
  Receive Date: 20190211
  Receipt Date: 20190211
  Transmission Date: 20190417
  Serious: Yes (Disabling)
  Sender: FDA-Public Use
  Company Number: None

PATIENT
  Age: 29 Year
  Sex: Female
  Weight: 103.5 kg

DRUGS (4)
  1. INTERFERON [Concomitant]
     Active Substance: INTERFERON
  2. BENADRYL [Concomitant]
     Active Substance: DIPHENHYDRAMINE HYDROCHLORIDE
  3. LEVAQUIN [Suspect]
     Active Substance: LEVOFLOXACIN
     Indication: POST PROCEDURAL INFECTION
     Route: 048
     Dates: start: 20010912, end: 20010928
  4. LEVAQUIN [Concomitant]
     Active Substance: LEVOFLOXACIN

REACTIONS (14)
  - Pain [None]
  - Paraesthesia [None]
  - Confusional state [None]
  - Neuropathy peripheral [None]
  - Anxiety [None]
  - Toxicity to various agents [None]
  - Myalgia [None]
  - Arthralgia [None]
  - Skin burning sensation [None]
  - Procedural pain [None]
  - Multiple allergies [None]
  - Product complaint [None]
  - Autoimmune disorder [None]
  - Hypothyroidism [None]

NARRATIVE: CASE EVENT DATE: 20010912
